FAERS Safety Report 9145697 (Version 1)
Quarter: 2013Q1

REPORT INFORMATION
  Report Type: Spontaneous
  Country: US (occurrence: None)
  Receive Date: 20130227
  Receipt Date: 20130227
  Transmission Date: 20140127
  Serious: Yes (Other)
  Sender: FDA-Public Use
  Company Number: None

PATIENT
  Age: 170 None
  Sex: Female
  Weight: 77.11 kg

DRUGS (5)
  1. ALPRAZOLAM [Suspect]
     Indication: PANIC DISORDER
     Dosage: 1 MG - OVAL -ROUND 3X^S DAY
     Dates: start: 201212, end: 20130214
  2. ALPRAZOLAM [Suspect]
     Dates: start: 201207
  3. ALBUTEROL [Concomitant]
  4. BENADRYL [Concomitant]
  5. PRAVASTATIN [Concomitant]

REACTIONS (9)
  - Ear pain [None]
  - Cystitis [None]
  - Chest pain [None]
  - Tinnitus [None]
  - Palpitations [None]
  - Urinary retention [None]
  - Pruritus [None]
  - Paraesthesia [None]
  - Skin burning sensation [None]
